FAERS Safety Report 21855237 (Version 2)
Quarter: 2023Q1

REPORT INFORMATION
  Report Type: Spontaneous
  Country: NL (occurrence: NL)
  Receive Date: 20230112
  Receipt Date: 20230224
  Transmission Date: 20230418
  Serious: Yes (Death, Other)
  Sender: FDA-Public Use
  Company Number: NL-AMNEAL PHARMACEUTICALS-2023-AMRX-00058

PATIENT
  Age: 69 Year
  Sex: Male

DRUGS (4)
  1. MYCOPHENOLATE MOFETIL [Suspect]
     Active Substance: MYCOPHENOLATE MOFETIL
     Indication: Transplant rejection
     Dosage: 750 MICROGRAM, DAILY
     Route: 065
  2. ACYCLOVIR [Suspect]
     Active Substance: ACYCLOVIR
     Indication: Meningoencephalitis herpetic
     Dosage: 10 MG/KG BID FOR AT LEAST 21 DAYS
     Route: 065
  3. ACYCLOVIR [Suspect]
     Active Substance: ACYCLOVIR
     Dosage: 400 MG BID
     Route: 065
  4. ACYCLOVIR [Suspect]
     Active Substance: ACYCLOVIR
     Dosage: 250 MG BID
     Route: 065

REACTIONS (6)
  - General physical health deterioration [Fatal]
  - Overdose [Unknown]
  - Neurotoxicity [Unknown]
  - Myoclonus [Recovered/Resolved]
  - Drug interaction [Unknown]
  - Confusional state [Not Recovered/Not Resolved]
